FAERS Safety Report 14227129 (Version 1)
Quarter: 2017Q4

REPORT INFORMATION
  Report Type: Spontaneous
  Country: AU (occurrence: AU)
  Receive Date: 20171127
  Receipt Date: 20171127
  Transmission Date: 20180321
  Serious: Yes (Other)
  Sender: FDA-Public Use
  Company Number: AU-JNJFOC-20171129332

PATIENT
  Age: 57 Year
  Sex: Female

DRUGS (1)
  1. INFLIXIMAB, RECOMBINANT [Suspect]
     Active Substance: INFLIXIMAB
     Indication: CROHN^S DISEASE
     Dosage: FOR 12 MONTHS
     Route: 042

REACTIONS (2)
  - Herpes zoster [Recovered/Resolved]
  - Facial paralysis [Unknown]
